FAERS Safety Report 6598765-6 (Version None)
Quarter: 2010Q1

REPORT INFORMATION
  Report Type: 
  Country: None (occurrence: None)
  Receive Date: 20100224
  Receipt Date: 20100215
  Transmission Date: 20100710
  Serious: Yes (Life-Threatening, Hospitalization)
  Sender: FDA-Public Use
  Company Number: DE-JNJFOC-20100207927

PATIENT
  Age: 68 Year
  Sex: Male
  Weight: 89 kg

DRUGS (3)
  1. REMICADE [Suspect]
     Indication: RHEUMATOID ARTHRITIS
     Route: 042
     Dates: start: 20090522
  2. PREDNISOLONE [Concomitant]
     Indication: RHEUMATOID ARTHRITIS
     Route: 048
  3. METHOTREXATE [Concomitant]
     Indication: RHEUMATOID ARTHRITIS
     Route: 048

REACTIONS (7)
  - DISSEMINATED INTRAVASCULAR COAGULATION [None]
  - ISCHAEMIC HEPATITIS [None]
  - MULTI-ORGAN FAILURE [None]
  - PNEUMOCYSTIS JIROVECI INFECTION [None]
  - RHABDOMYOLYSIS [None]
  - SEPTIC SHOCK [None]
  - UPPER GASTROINTESTINAL HAEMORRHAGE [None]
